FAERS Safety Report 10540006 (Version 1)
Quarter: 2014Q4

REPORT INFORMATION
  Report Type: Spontaneous
  Country: US (occurrence: None)
  Receive Date: 20141022
  Receipt Date: 20141022
  Transmission Date: 20150529
  Serious: Yes (Hospitalization)
  Sender: FDA-Public Use
  Company Number: VAL_03479_2014

PATIENT
  Sex: Male
  Weight: 80.29 kg

DRUGS (16)
  1. LOPRESSOR [Suspect]
     Active Substance: METOPROLOL TARTRATE
     Indication: HYPERTENSION
     Dosage: DF
  2. HYDROCHLOROTHIAZIDE. [Concomitant]
     Active Substance: HYDROCHLOROTHIAZIDE
  3. ANDROGEL [Concomitant]
     Active Substance: TESTOSTERONE
  4. TAMSULOSIN [Concomitant]
     Active Substance: TAMSULOSIN
  5. CALCITRIOL. [Concomitant]
     Active Substance: CALCITRIOL
  6. OMEGA 3 FISH OIL/01334101 [Concomitant]
  7. DIGOXIN. [Concomitant]
     Active Substance: DIGOXIN
  8. BYSTOLIC [Concomitant]
     Active Substance: NEBIVOLOL HYDROCHLORIDE
  9. AMARYL [Concomitant]
     Active Substance: GLIMEPIRIDE
  10. ASPIRIN. [Concomitant]
     Active Substance: ASPIRIN
  11. NORVASC [Concomitant]
     Active Substance: AMLODIPINE BESYLATE
  12. WARFARIN [Concomitant]
     Active Substance: WARFARIN
  13. AMIODARONE [Concomitant]
     Active Substance: AMIODARONE
  14. JANUVIA [Concomitant]
     Active Substance: SITAGLIPTIN PHOSPHATE
  15. MULTIVITAMINS [Concomitant]
     Active Substance: VITAMINS
  16. ATORVASTATIN(40 MG, 40 MG) [Suspect]
     Active Substance: ATORVASTATIN
     Indication: BLOOD CHOLESTEROL INCREASED
     Dosage: ORAL, 0.5 DF QD ORAL
     Route: 048

REACTIONS (4)
  - Blood pressure decreased [None]
  - Myocardial infarction [None]
  - Carotid artery stenosis [None]
  - Therapy change [None]

NARRATIVE: CASE EVENT DATE: 2007
